FAERS Safety Report 17746353 (Version 1)
Quarter: 2020Q2

REPORT INFORMATION
  Report Type: Spontaneous
  Country: GR (occurrence: GR)
  Receive Date: 20200505
  Receipt Date: 20200505
  Transmission Date: 20200714
  Serious: Yes (Death, Other)
  Sender: FDA-Public Use
  Company Number: GR-009507513-2005GRC000696

PATIENT
  Age: 90 Year
  Sex: Male

DRUGS (3)
  1. CORTICOSTEROIDS (UNSPECIFIED) [Suspect]
     Active Substance: UNSPECIFIED INGREDIENT
     Dosage: UNK
  2. KEYTRUDA [Suspect]
     Active Substance: PEMBROLIZUMAB
     Indication: NON-SMALL CELL LUNG CANCER
     Dosage: CYCLICAL (RECEIVED 2 CYCLES)
  3. KEYTRUDA [Suspect]
     Active Substance: PEMBROLIZUMAB
     Indication: ADENOCARCINOMA

REACTIONS (4)
  - Death [Fatal]
  - Sepsis [Unknown]
  - Myocarditis [Unknown]
  - Pulmonary oedema [Unknown]
